FAERS Safety Report 17760541 (Version 1)
Quarter: 2020Q2

REPORT INFORMATION
  Report Type: Report from Study
  Country: CZ (occurrence: CZ)
  Receive Date: 20200508
  Receipt Date: 20200508
  Transmission Date: 20200714
  Serious: Yes (Life-Threatening, Hospitalization, Disabling)
  Sender: FDA-Public Use
  Company Number: CZ-ROCHE-2594197

PATIENT
  Age: 72 Year
  Sex: Male
  Weight: 91 kg

DRUGS (2)
  1. PIRFENIDONE. [Suspect]
     Active Substance: PIRFENIDONE
     Indication: IDIOPATHIC PULMONARY FIBROSIS
     Route: 048
     Dates: end: 20200215
  2. PIRFENIDONE. [Suspect]
     Active Substance: PIRFENIDONE
     Route: 048

REACTIONS (3)
  - Herpes ophthalmic [Recovered/Resolved]
  - Meningoencephalitis herpetic [Recovered/Resolved]
  - Rash [Recovered/Resolved]

NARRATIVE: CASE EVENT DATE: 20181224
